FAERS Safety Report 15341209 (Version 8)
Quarter: 2019Q2

REPORT INFORMATION
  Report Type: Report from Study
  Country: JP (occurrence: JP)
  Receive Date: 20180831
  Receipt Date: 20190404
  Transmission Date: 20190711
  Serious: Yes (Other)
  Sender: FDA-Public Use
  Company Number: PHJP2018JP015542

PATIENT
  Age: 78 Year
  Sex: Female
  Weight: 39.5 kg

DRUGS (8)
  1. MYSER [Concomitant]
     Indication: RASH
     Dosage: BID
     Route: 065
     Dates: start: 20180118
  2. LEE011 [Suspect]
     Active Substance: RIBOCICLIB
     Dosage: 100 MG, UNK
     Route: 048
     Dates: start: 20180412, end: 20180802
  3. RINDERON VG [Concomitant]
     Active Substance: BETAMETHASONE VALERATE\GENTAMICIN SULFATE
     Indication: RASH
     Dosage: BID
     Route: 065
     Dates: start: 20180118
  4. LEE011 [Suspect]
     Active Substance: RIBOCICLIB
     Indication: BREAST CANCER
     Dosage: 300 MG (QD, 3 WEEKS ON/1 WEEK OFF)
     Route: 048
     Dates: start: 20160512, end: 20180118
  5. LEE011 [Suspect]
     Active Substance: RIBOCICLIB
     Dosage: 200 MG, UNK
     Route: 048
     Dates: start: 20180215
  6. TALION [Concomitant]
     Indication: RASH
     Dosage: 20 MG, QD
     Route: 048
     Dates: start: 20180118
  7. LEE011 [Suspect]
     Active Substance: RIBOCICLIB
     Dosage: 300 MG, UNK
     Route: 048
     Dates: start: 20180201
  8. FEMARA [Suspect]
     Active Substance: LETROZOLE
     Indication: BREAST CANCER
     Dosage: 2.5 MG, QD
     Route: 048
     Dates: start: 20160512, end: 20180830

REACTIONS (1)
  - Myelodysplastic syndrome [Not Recovered/Not Resolved]

NARRATIVE: CASE EVENT DATE: 20180823
